FAERS Safety Report 24942078 (Version 3)
Quarter: 2025Q1

REPORT INFORMATION
  Report Type: Spontaneous
  Country: US (occurrence: US)
  Receive Date: 20250207
  Receipt Date: 20250211
  Transmission Date: 20250409
  Serious: No
  Sender: BIOGEN
  Company Number: US-BIOGEN-2025BI01299602

PATIENT
  Sex: Female

DRUGS (1)
  1. TYSABRI [Suspect]
     Active Substance: NATALIZUMAB
     Indication: Multiple sclerosis
     Route: 050
     Dates: start: 20070522

REACTIONS (3)
  - Multiple sclerosis relapse [Unknown]
  - Anxiety [Unknown]
  - Headache [Unknown]
